FAERS Safety Report 16269861 (Version 1)
Quarter: 2019Q2

REPORT INFORMATION
  Report Type: Spontaneous
  Country: US (occurrence: US)
  Receive Date: 20190502
  Receipt Date: 20190502
  Transmission Date: 20190711
  Serious: Yes (Hospitalization)
  Sender: FDA-Public Use
  Company Number: None

PATIENT
  Age: 54 Year
  Sex: Female

DRUGS (5)
  1. ROSUVASTATIN. [Concomitant]
     Active Substance: ROSUVASTATIN
  2. METHOCARBAM, OXYCOD/APAP [Concomitant]
  3. LISINOPRIL, LYRICA [Concomitant]
  4. REPATHA [Suspect]
     Active Substance: EVOLOCUMAB
     Indication: HYPERCHOLESTEROLAEMIA
     Dosage: ?          OTHER FREQUENCY:Q 14 DAYS;?
     Route: 058
     Dates: start: 20190116
  5. ATORVASTATIN, BACLOFEN [Concomitant]

REACTIONS (1)
  - Infusion [None]

NARRATIVE: CASE EVENT DATE: 20190424
